FAERS Safety Report 8790230 (Version 1)
Quarter: 2012Q4

REPORT INFORMATION
  Report Type: 
  Country: US (occurrence: US)
  Receive Date: 20120917
  Receipt Date: 20120917
  Transmission Date: 20130627
  Serious: No
  Sender: FDA-Public Use
  Company Number: US-PFIZER INC-2012228129

PATIENT
  Age: 46 Year
  Sex: Female

DRUGS (2)
  1. EFFEXOR XR [Suspect]
     Indication: DEPRESSION
     Dosage: 225 mg (one capsule of 150mg along with one capsule of 75mg), Daily
     Dates: end: 201209
  2. WELLBUTRIN [Concomitant]
     Dosage: 150 mg, daily

REACTIONS (3)
  - Withdrawal syndrome [Not Recovered/Not Resolved]
  - Irritability [Not Recovered/Not Resolved]
  - Agitation [Not Recovered/Not Resolved]
